FAERS Safety Report 4948563-1 (Version None)
Quarter: 2006Q1

REPORT INFORMATION
  Report Type: 
  Country: None (occurrence: None)
  Receive Date: 20060320
  Receipt Date: 20060313
  Transmission Date: 20060701
  Serious: Yes (Other)
  Sender: FDA-Public Use
  Company Number: JP-MERCK-0603USA02661

PATIENT
  Age: 55 Year
  Sex: Female

DRUGS (5)
  1. FAMOTIDINE [Concomitant]
     Route: 048
  2. ALFACALCIDOL [Suspect]
     Route: 048
  3. TEPRENONE [Concomitant]
     Route: 048
  4. CALCIUM CARBONATE [Concomitant]
     Route: 048
  5. ZOCOR [Suspect]
     Route: 048

REACTIONS (1)
  - DEAFNESS [None]
